FAERS Safety Report 9139827 (Version 1)
Quarter: 2013Q1

REPORT INFORMATION
  Report Type: Spontaneous
  Country: SE (occurrence: SE)
  Receive Date: 20130305
  Receipt Date: 20130305
  Transmission Date: 20140127
  Serious: Yes (Hospitalization)
  Sender: FDA-Public Use
  Company Number: SE-JNJFOC-20130215098

PATIENT
  Age: 18 Year
  Sex: Female

DRUGS (1)
  1. CILEST [Suspect]
     Indication: CONTRACEPTION
     Dosage: SINCE ONE YEAR
     Route: 048
     Dates: start: 20120101, end: 20130101

REACTIONS (7)
  - Pulmonary embolism [Not Recovered/Not Resolved]
  - Dyspnoea [Not Recovered/Not Resolved]
  - Vomiting [Not Recovered/Not Resolved]
  - Pain [Not Recovered/Not Resolved]
  - Blood potassium decreased [Unknown]
  - Cough [Not Recovered/Not Resolved]
  - C-reactive protein decreased [Unknown]
